FAERS Safety Report 8797518 (Version 1)
Quarter: 2012Q4

REPORT INFORMATION
  Report Type: Spontaneous
  Country: US (occurrence: None)
  Receive Date: 20120914
  Receipt Date: 20120914
  Transmission Date: 20130627
  Serious: No
  Sender: FDA-Public Use
  Company Number: None

PATIENT

DRUGS (2)
  1. VANCOMYSIN [Suspect]
     Indication: SEPSIS
     Route: 042
     Dates: start: 20120712, end: 20120714
  2. VANCOMYCIN [Suspect]

REACTIONS (2)
  - Blood creatinine increased [None]
  - Blood urea increased [None]
